FAERS Safety Report 7448776-3 (Version None)
Quarter: 2011Q2

REPORT INFORMATION
  Report Type: 
  Country: None (occurrence: None)
  Receive Date: 20110429
  Receipt Date: 20100802
  Transmission Date: 20111010
  Serious: No
  Sender: FDA-Public Use
  Company Number: US-ASTRAZENECA-2010SE36198

PATIENT
  Sex: Female

DRUGS (4)
  1. LEVOTHYROXINE SODIUM [Concomitant]
  2. AVANDAMET [Concomitant]
  3. GLYBER METFORMIN [Concomitant]
  4. NEXIUM [Suspect]
     Indication: ULCER
     Route: 048

REACTIONS (2)
  - DRUG DOSE OMISSION [None]
  - FLATULENCE [None]
